FAERS Safety Report 23104295 (Version 1)
Quarter: 2023Q4

REPORT INFORMATION
  Report Type: Spontaneous
  Country: US (occurrence: None)
  Receive Date: 20231024
  Receipt Date: 20231024
  Transmission Date: 20240109
  Serious: Yes (Life-Threatening, Other)
  Sender: FDA-Public Use
  Company Number: None

PATIENT
  Sex: Female
  Weight: 76.5 kg

DRUGS (2)
  1. MOUNJARO [Suspect]
     Active Substance: TIRZEPATIDE
     Indication: Glucose tolerance impaired
     Dosage: OTHER FREQUENCY : WEEKLY;?
     Route: 042
     Dates: start: 20230315, end: 20230930
  2. MOUNJARO [Concomitant]
     Active Substance: TIRZEPATIDE
     Dates: start: 20230315, end: 20230915

REACTIONS (1)
  - Pancreatic cyst [None]

NARRATIVE: CASE EVENT DATE: 20230803
